FAERS Safety Report 23734912 (Version 2)
Quarter: 2024Q2

REPORT INFORMATION
  Report Type: Report from Study
  Country: TW (occurrence: TW)
  Receive Date: 20240412
  Receipt Date: 20240508
  Transmission Date: 20240716
  Serious: Yes (Hospitalization)
  Sender: FDA-Public Use
  Company Number: TW-ABBVIE-5715473

PATIENT
  Age: 50 Year
  Sex: Male
  Weight: 115 kg

DRUGS (5)
  1. HUMIRA [Suspect]
     Active Substance: ADALIMUMAB
     Indication: Psoriatic arthropathy
     Route: 058
     Dates: start: 20201202
  2. METHOTREXATE [Concomitant]
     Active Substance: METHOTREXATE
     Indication: Psoriatic arthropathy
     Dosage: FREQUENCY TEXT: 7.5MG/WEEK
     Route: 048
     Dates: start: 20210606, end: 20210810
  3. METHOTREXATE [Concomitant]
     Active Substance: METHOTREXATE
     Indication: Psoriatic arthropathy
     Dosage: FREQUENCY TEXT: 10MG/WEEK
     Route: 048
     Dates: start: 20210811, end: 20230221
  4. METHOTREXATE [Concomitant]
     Active Substance: METHOTREXATE
     Indication: Psoriatic arthropathy
     Dosage: FREQUENCY TEXT: 12.5MG/WEEK
     Route: 048
     Dates: start: 20230222
  5. ARCOXIA [Concomitant]
     Active Substance: ETORICOXIB
     Indication: Psoriatic arthropathy
     Route: 048
     Dates: start: 20211229

REACTIONS (3)
  - Chills [Unknown]
  - Urinary tract infection [Recovered/Resolved]
  - Pyrexia [Unknown]

NARRATIVE: CASE EVENT DATE: 20240403
